FAERS Safety Report 9051500 (Version 1)
Quarter: 2013Q1

REPORT INFORMATION
  Report Type: Report from Study
  Country: US (occurrence: US)
  Receive Date: 20130206
  Receipt Date: 20130206
  Transmission Date: 20140127
  Serious: Yes (Hospitalization)
  Sender: FDA-Public Use
  Company Number: US-MERCK-1302USA001348

PATIENT
  Age: 53 Year
  Sex: 0

DRUGS (4)
  1. VORINOSTAT [Suspect]
     Indication: PLASMA CELL MYELOMA
     Dosage: 300MG VORINOSTAT DAYS 1-7 AND 15-21
     Route: 048
     Dates: start: 20130110, end: 20130124
  2. VORINOSTAT [Suspect]
     Dosage: 300MG VORINOSTAT DAYS 1-7 AND 15-21
     Route: 048
     Dates: start: 20110627
  3. LENALIDOMIDE [Suspect]
     Indication: PLASMA CELL MYELOMA
     Dosage: 5MG ON DAYS 1-21 OF A 28 DAY CYCLE
     Route: 048
     Dates: start: 20130110, end: 20130124
  4. LENALIDOMIDE [Suspect]
     Dosage: UNK
     Route: 048
     Dates: start: 20110627

REACTIONS (3)
  - Febrile neutropenia [Unknown]
  - Hyperbilirubinaemia [Unknown]
  - Transaminases increased [Unknown]
